FAERS Safety Report 6095579-0 (Version None)
Quarter: 2009Q1

REPORT INFORMATION
  Report Type: 
  Country: None (occurrence: None)
  Receive Date: 20090227
  Receipt Date: 20080430
  Transmission Date: 20090719
  Serious: No
  Sender: FDA-Public Use
  Company Number: A0725636A

PATIENT
  Age: 54 Year
  Sex: Female

DRUGS (1)
  1. LAMICTAL [Suspect]
     Indication: MOOD SWINGS
     Dosage: 200MG PER DAY
     Route: 048
     Dates: start: 20080301

REACTIONS (8)
  - ANXIETY [None]
  - DEPRESSION [None]
  - DISCOMFORT [None]
  - FEELING ABNORMAL [None]
  - INSOMNIA [None]
  - RESTLESSNESS [None]
  - SOMNOLENCE [None]
  - WITHDRAWAL SYNDROME [None]
